FAERS Safety Report 9441997 (Version 1)
Quarter: 2013Q3

REPORT INFORMATION
  Report Type: Spontaneous
  Country: BR (occurrence: BR)
  Receive Date: 20130806
  Receipt Date: 20130806
  Transmission Date: 20140515
  Serious: Yes (Other)
  Sender: FDA-Public Use
  Company Number: BR-AMGEN-BRASP2012079960

PATIENT
  Age: 60 Year
  Sex: Female
  Weight: 60 kg

DRUGS (11)
  1. ENBREL [Suspect]
     Indication: ANKYLOSING SPONDYLITIS
     Dosage: 50 MG, WEEKLY
     Route: 058
     Dates: start: 201211, end: 201211
  2. ENALAPRIL [Concomitant]
     Indication: ANKYLOSING SPONDYLITIS
     Dosage: 20 MG, BID
     Dates: start: 1982
  3. PROPRANOLOL [Concomitant]
     Indication: ANKYLOSING SPONDYLITIS
     Dosage: STREGTH 40MG, TWICE A DAY
     Dates: start: 1982
  4. AMLODIPINE [Concomitant]
     Indication: ANKYLOSING SPONDYLITIS
     Dosage: STREGTH 10MG, ONCE A DAY
  5. APRESOLINE [Concomitant]
     Indication: ANKYLOSING SPONDYLITIS
     Dosage: STREGTH 10MG, ONCE A DAY
     Dates: start: 1982
  6. PARACETAMOL [Concomitant]
     Indication: PAIN
     Dosage: 500 MG, Q4H
  7. OMEPRAZOL                          /00661201/ [Concomitant]
     Dosage: STREGTH 20MG, TWICE A DAY
  8. HYDROCHLOROTHIAZIDE [Concomitant]
     Dosage: UNK
  9. ISOSORBIDE [Concomitant]
     Indication: ANKYLOSING SPONDYLITIS
     Dosage: UNK, TWICE A DAY
     Dates: start: 1982
  10. PRESS PLUS [Concomitant]
     Dosage: UNK
     Dates: start: 1982
  11. DORFLEX [Concomitant]
     Indication: PAIN
     Dosage: UNK UNK, Q4H

REACTIONS (11)
  - Movement disorder [Unknown]
  - Bedridden [Unknown]
  - Pain [Unknown]
  - Abasia [Unknown]
  - Feeding disorder [Unknown]
  - Activities of daily living impaired [Unknown]
  - Gait disturbance [Unknown]
  - Nuchal rigidity [Unknown]
  - Weight decreased [Unknown]
  - Body height decreased [Unknown]
  - Condition aggravated [Unknown]
